FAERS Safety Report 18596589 (Version 1)
Quarter: 2020Q4

REPORT INFORMATION
  Report Type: Spontaneous
  Country: ES (occurrence: ES)
  Receive Date: 20201209
  Receipt Date: 20201209
  Transmission Date: 20210114
  Serious: Yes (Hospitalization)
  Sender: FDA-Public Use
  Company Number: ES-MYLANLABS-2020M1100696

PATIENT
  Age: 54 Year
  Sex: Female

DRUGS (4)
  1. CEFAZOLINA /00288501/ [Suspect]
     Active Substance: CEFAZOLIN
     Indication: ANTIBIOTIC PROPHYLAXIS
     Dosage: 2 GRAM, TOTAL 2 GR DU
     Route: 042
     Dates: start: 20200703, end: 20200703
  2. PROPOFOL. [Suspect]
     Active Substance: PROPOFOL
     Indication: PULMONARY RESECTION
     Dosage: INDUCCION 200 MG SEGUIDO DE TIVA
     Route: 042
     Dates: start: 20200703, end: 20200703
  3. FENTANYL. [Suspect]
     Active Substance: FENTANYL
     Indication: PULMONARY RESECTION
     Dosage: 400 MICROGRAM, TOTAL,INDUCCION 150 MCG SEGUIDO DE 250 MCG
     Route: 042
     Dates: start: 20200703, end: 20200703
  4. ROCURONIO [Suspect]
     Active Substance: ROCURONIUM BROMIDE
     Indication: PULMONARY RESECTION
     Dosage: 20 MILLIGRAM, TOTAL
     Route: 042
     Dates: start: 20200703, end: 20200703

REACTIONS (1)
  - Hepatitis acute [Recovered/Resolved]

NARRATIVE: CASE EVENT DATE: 20200703
